FAERS Safety Report 18051121 (Version 1)
Quarter: 2020Q3

REPORT INFORMATION
  Report Type: Spontaneous
  Country: DE (occurrence: DE)
  Receive Date: 20200721
  Receipt Date: 20200721
  Transmission Date: 20201103
  Serious: Yes (Other)
  Sender: FDA-Public Use
  Company Number: DE-MYLANLABS-2020M1064614

PATIENT
  Sex: Female

DRUGS (7)
  1. HYALURONATE SODIUM [Concomitant]
     Active Substance: HYALURONATE SODIUM
     Indication: PRODUCT USED FOR UNKNOWN INDICATION
     Dosage: UNK
     Route: 065
     Dates: start: 201609
  2. ASS RATIOPHARM [Concomitant]
     Active Substance: ASPIRIN
     Indication: PRODUCT USED FOR UNKNOWN INDICATION
     Dosage: 100 MILLIGRAM
     Route: 065
     Dates: start: 201704
  3. HYLO GEL [Concomitant]
     Indication: PRODUCT USED FOR UNKNOWN INDICATION
     Dosage: UNK, IN CASE OF INFECTIONS
     Route: 065
     Dates: start: 201802
  4. VALSARTAN. [Suspect]
     Active Substance: VALSARTAN
     Dosage: 320 MILLIGRAM
     Route: 065
     Dates: start: 201807, end: 201907
  5. VIGANTOL                           /00318501/ [Concomitant]
     Active Substance: CHOLECALCIFEROL
     Indication: PRODUCT USED FOR UNKNOWN INDICATION
     Dosage: 1000 INTERNATIONAL UNIT
     Route: 065
     Dates: start: 201807
  6. VALSARTAN. [Suspect]
     Active Substance: VALSARTAN
     Indication: PRODUCT USED FOR UNKNOWN INDICATION
     Dosage: 160 MG (160 MG?320 MG), QD
     Route: 065
     Dates: start: 201509, end: 201807
  7. METFORMINE HCL [Concomitant]
     Active Substance: METFORMIN HYDROCHLORIDE
     Indication: PRODUCT USED FOR UNKNOWN INDICATION
     Dosage: 1000 MILLIGRAM
     Route: 065
     Dates: start: 201801

REACTIONS (7)
  - Fear of disease [Not Recovered/Not Resolved]
  - Post-traumatic stress disorder [Not Recovered/Not Resolved]
  - Diabetes mellitus [Unknown]
  - Aortic stenosis [Unknown]
  - Cardiovascular disorder [Unknown]
  - Respiratory tract infection [Unknown]
  - Breast calcifications [Not Recovered/Not Resolved]

NARRATIVE: CASE EVENT DATE: 2016
